FAERS Safety Report 24745095 (Version 1)
Quarter: 2024Q4

REPORT INFORMATION
  Report Type: Spontaneous
  Country: US (occurrence: US)
  Receive Date: 20241217
  Receipt Date: 20241217
  Transmission Date: 20250115
  Serious: Yes (Other)
  Sender: TAIHO ONCOLOGY INC
  Company Number: US-Taiho Oncology Inc-2024-011860

PATIENT
  Age: 74 Year
  Sex: Female

DRUGS (1)
  1. INQOVI [Suspect]
     Active Substance: CEDAZURIDINE\DECITABINE
     Indication: Myelodysplastic syndrome
     Dosage: DOSE AND FREQUENCY WERE UNKNOWN; CYCLE 5
     Route: 048
     Dates: start: 202311

REACTIONS (1)
  - Cytopenia [Unknown]
